FAERS Safety Report 11795230 (Version 1)
Quarter: 2015Q4

REPORT INFORMATION
  Report Type: Spontaneous
  Country: ES (occurrence: ES)
  Receive Date: 20151202
  Receipt Date: 20151202
  Transmission Date: 20160305
  Serious: Yes (Other)
  Sender: FDA-Public Use
  Company Number: ES-009507513-1504ESP012260

PATIENT
  Age: 47 Year
  Sex: Female

DRUGS (1)
  1. MK-3009 [Suspect]
     Active Substance: DAPTOMYCIN
     Dosage: UNK UNK, UNK
     Dates: start: 20120806, end: 20120809

REACTIONS (1)
  - Toxic skin eruption [Recovered/Resolved]

NARRATIVE: CASE EVENT DATE: 20120808
